FAERS Safety Report 7006443-4 (Version None)
Quarter: 2010Q3

REPORT INFORMATION
  Report Type: 
  Country: None (occurrence: None)
  Receive Date: 20100921
  Receipt Date: 20100915
  Transmission Date: 20110219
  Serious: Yes (Hospitalization)
  Sender: FDA-Public Use
  Company Number: FR-AMGEN-KDC438305

PATIENT
  Sex: Female

DRUGS (6)
  1. ROMIPLOSTIM [Suspect]
     Indication: IDIOPATHIC THROMBOCYTOPENIC PURPURA
     Route: 058
     Dates: start: 20100806
  2. ROMIPLOSTIM - STUDY PROCEDURE [Suspect]
  3. LEVONORGESTREL AND ETHINYL ESTRADIOL [Concomitant]
     Route: 048
     Dates: start: 20080101, end: 20100911
  4. MEDROL [Concomitant]
     Route: 048
     Dates: start: 20100906
  5. MABTHERA [Concomitant]
     Route: 014
     Dates: start: 20100825, end: 20100906
  6. HEPARIN SODIUM [Concomitant]
     Route: 042
     Dates: start: 20100911, end: 20100915

REACTIONS (2)
  - CHEST PAIN [None]
  - DYSPNOEA [None]
